FAERS Safety Report 6867427-X (Version None)
Quarter: 2010Q3

REPORT INFORMATION
  Report Type: 
  Country: None (occurrence: None)
  Receive Date: 20100722
  Receipt Date: 20100713
  Transmission Date: 20110219
  Serious: Yes (Other)
  Sender: FDA-Public Use
  Company Number: JP-PFIZER INC-2010086840

PATIENT
  Age: 61 Year
  Sex: Female
  Weight: 58 kg

DRUGS (4)
  1. SUNITINIB MALATE [Suspect]
     Indication: RENAL CELL CARCINOMA
     Dosage: 50 MG, 1X/DAY
     Route: 048
     Dates: start: 20080716, end: 20080812
  2. CLOBETASOL PROPIONATE [Concomitant]
     Dosage: UNK
     Route: 062
     Dates: start: 20080804, end: 20080825
  3. THYRADIN S [Concomitant]
     Dosage: 25 UG, 1X/DAY
     Route: 048
     Dates: start: 20080805, end: 20080825
  4. ADALAT CC [Concomitant]
     Dosage: 20 MG, 2X/DAY
     Route: 048

REACTIONS (1)
  - INTERSTITIAL LUNG DISEASE [None]
